FAERS Safety Report 8763038 (Version 3)
Quarter: 2012Q4

REPORT INFORMATION
  Report Type: Spontaneous
  Country: US (occurrence: None)
  Receive Date: 20120823
  Receipt Date: 20121023
  Transmission Date: 20130627
  Serious: Yes (Hospitalization, Other)
  Sender: FDA-Public Use
  Company Number: ADR-2012-01535

PATIENT
  Age: 60 Year
  Sex: Male

DRUGS (2)
  1. LIORESAL [Suspect]
     Indication: SPASTICITY
     Dosage: 176 mcg/day
  2. LIORESAL [Suspect]
     Indication: SPINAL CORD INJURY
     Dosage: 176 mcg/day

REACTIONS (7)
  - Implant site infection [None]
  - Nausea [None]
  - Headache [None]
  - Photophobia [None]
  - Incision site haemorrhage [None]
  - Implant site effusion [None]
  - Meningeal disorder [None]
